FAERS Safety Report 8847050 (Version 1)
Quarter: 2012Q4

REPORT INFORMATION
  Report Type: 
  Country: US (occurrence: US)
  Receive Date: 20121018
  Receipt Date: 20121018
  Transmission Date: 20130627
  Serious: Yes (Hospitalization, Disabling, Other)
  Sender: FDA-Public Use
  Company Number: US-009507513-1107USA03285

PATIENT

DRUGS (8)
  1. FOSAMAX [Suspect]
     Indication: OSTEOPENIA
     Dosage: 5 mg, UNK
     Route: 048
     Dates: start: 19990413, end: 20000413
  2. FOSAMAX [Suspect]
     Dosage: 10 mg, qd
     Route: 048
     Dates: start: 2000, end: 20010321
  3. FOSAMAX [Suspect]
     Dosage: 70 mg, QW
     Route: 048
     Dates: start: 20010321, end: 200904
  4. FOSAMAX [Suspect]
     Dosage: UNK
     Route: 048
  5. MK-9278 [Concomitant]
     Dosage: 1 DF, qd
     Dates: start: 1997
  6. CALCIUM (UNSPECIFIED) [Concomitant]
     Indication: OSTEOPENIA
     Dosage: 1000 mg, UNK
     Dates: start: 1997
  7. SYNTHROID [Concomitant]
     Indication: HYPOTHYROIDISM
     Dates: start: 1997, end: 2007
  8. OGEN [Concomitant]
     Indication: MENOPAUSE

REACTIONS (58)
  - Femur fracture [Recovering/Resolving]
  - Tibia fracture [Unknown]
  - Nasal septum disorder [Unknown]
  - Hypokalaemia [Unknown]
  - Blood cholesterol increased [Unknown]
  - Fall [Unknown]
  - Herpes zoster [Unknown]
  - Haemorrhagic anaemia [Unknown]
  - Hyperglycaemia [Unknown]
  - Diabetes mellitus [Unknown]
  - Femur fracture [Unknown]
  - Tooth crowding [Unknown]
  - Gingival disorder [Unknown]
  - Fall [Unknown]
  - Low turnover osteopathy [Unknown]
  - Tooth disorder [Unknown]
  - Lymphadenopathy [Unknown]
  - Hypercalcaemia [Unknown]
  - Blood alkaline phosphatase increased [Unknown]
  - Hyperglycaemia [Unknown]
  - Fall [Unknown]
  - Contusion [Unknown]
  - Traumatic arthropathy [Unknown]
  - Intervertebral disc degeneration [Unknown]
  - Sacroiliitis [Not Recovered/Not Resolved]
  - Adverse drug reaction [Unknown]
  - Blood urine present [Recovered/Resolved]
  - Pain [Not Recovered/Not Resolved]
  - Arthropathy [Unknown]
  - Animal bite [Unknown]
  - Disturbance in attention [Unknown]
  - Peripheral coldness [Unknown]
  - Dyspnoea [Unknown]
  - Urinary tract infection [Unknown]
  - Diverticulum [Unknown]
  - Haemorrhoids [Unknown]
  - Chest pain [Unknown]
  - Sleep apnoea syndrome [Unknown]
  - Night sweats [Unknown]
  - Thirst [Unknown]
  - Somnolence [Unknown]
  - Musculoskeletal stiffness [Unknown]
  - Weight increased [Unknown]
  - Eczema [Unknown]
  - Blood pressure increased [Unknown]
  - Fibromyalgia [Unknown]
  - Glucose tolerance impaired [Unknown]
  - Sinus disorder [Unknown]
  - Metabolic syndrome [Unknown]
  - Pyrexia [Unknown]
  - Asthenia [Unknown]
  - Alopecia [Unknown]
  - Constipation [Unknown]
  - Pain in extremity [Unknown]
  - Headache [Not Recovered/Not Resolved]
  - Abdominal distension [Unknown]
  - Diarrhoea [Unknown]
  - Dysphagia [Unknown]
